FAERS Safety Report 13799845 (Version 1)
Quarter: 2017Q3

REPORT INFORMATION
  Report Type: Spontaneous
  Country: US (occurrence: US)
  Receive Date: 20170727
  Receipt Date: 20170727
  Transmission Date: 20171127
  Serious: Yes (Disabling)
  Sender: FDA-Public Use
  Company Number: None

PATIENT
  Sex: Female

DRUGS (7)
  1. OMEPRAZOLE. [Concomitant]
     Active Substance: OMEPRAZOLE
  2. JARDIANCE [Suspect]
     Active Substance: EMPAGLIFLOZIN
     Indication: BLOOD GLUCOSE INCREASED
     Dosage: ?          QUANTITY:1 TABLET(S);?
     Route: 048
  3. AMLODIPINE [Concomitant]
     Active Substance: AMLODIPINE BESYLATE
  4. TRAMADOL. [Concomitant]
     Active Substance: TRAMADOL
  5. TRESIBA [Suspect]
     Active Substance: INSULIN DEGLUDEC
     Indication: BLOOD GLUCOSE INCREASED
     Dosage: ?          OTHER STRENGTH:UNITS;QUANTITY:32 UNITS;OTHER ROUTE:SUBQ?
     Route: 058
  6. ZOLPIDEM [Concomitant]
     Active Substance: ZOLPIDEM\ZOLPIDEM TARTRATE
  7. LOSARTAN. [Concomitant]
     Active Substance: LOSARTAN

REACTIONS (8)
  - Pain in extremity [None]
  - Hypoaesthesia [None]
  - Dyspnoea [None]
  - Bladder disorder [None]
  - Micturition disorder [None]
  - Vision blurred [None]
  - Limb discomfort [None]
  - Dizziness [None]

NARRATIVE: CASE EVENT DATE: 20170717
